FAERS Safety Report 14015220 (Version 3)
Quarter: 2018Q2

REPORT INFORMATION
  Report Type: Spontaneous
  Country: GB (occurrence: GB)
  Receive Date: 20170927
  Receipt Date: 20180608
  Transmission Date: 20180711
  Serious: Yes (Other)
  Sender: FDA-Public Use
  Company Number: GB-TEVA-808358ACC

PATIENT
  Age: 35 Year
  Sex: Female
  Weight: 63 kg

DRUGS (12)
  1. LORAZEPAM. [Concomitant]
     Active Substance: LORAZEPAM
  2. ZOPICLONE [Concomitant]
     Active Substance: ZOPICLONE
  3. HYOSCINE [Concomitant]
     Active Substance: SCOPOLAMINE
     Dosage: AS REQUIRED
  4. QUETIAPINE. [Concomitant]
     Active Substance: QUETIAPINE
     Dosage: 650 MILLIGRAM DAILY;
  5. CETIRIZINE [Concomitant]
     Active Substance: CETIRIZINE HYDROCHLORIDE
     Dosage: AS REQUIRED
  6. LANSOPRAZOLE. [Concomitant]
     Active Substance: LANSOPRAZOLE
     Dosage: 30 MILLIGRAM DAILY;
  7. LAMOTRIGINE. [Suspect]
     Active Substance: LAMOTRIGINE
     Dates: start: 20170905
  8. IBUPROFEN. [Concomitant]
     Active Substance: IBUPROFEN
     Dosage: AS REQUIRED
  9. TRAZODONE [Concomitant]
     Active Substance: TRAZODONE HYDROCHLORIDE
  10. CODEINE PHOSPHATE [Concomitant]
     Active Substance: CODEINE PHOSPHATE
     Route: 065
  11. FERROUS FUMARATE [Concomitant]
     Active Substance: FERROUS FUMARATE
     Dosage: 420 MILLIGRAM DAILY;
  12. PROMETHAZINE [Concomitant]
     Active Substance: PROMETHAZINE\PROMETHAZINE HYDROCHLORIDE
     Dosage: AS REQUIRED

REACTIONS (2)
  - Blister [Recovered/Resolved]
  - Stevens-Johnson syndrome [Recovered/Resolved]

NARRATIVE: CASE EVENT DATE: 20170822
